FAERS Safety Report 16770265 (Version 1)
Quarter: 2019Q3

REPORT INFORMATION
  Report Type: Spontaneous
  Country: FR (occurrence: FR)
  Receive Date: 20190904
  Receipt Date: 20190904
  Transmission Date: 20191005
  Serious: Yes (Hospitalization)
  Sender: FDA-Public Use
  Company Number: FR-TEVA-2019-FR-1101632

PATIENT
  Age: 96 Year
  Sex: Female
  Weight: 54 kg

DRUGS (7)
  1. ATENOLOL ARROW 100 MG, COMPRIM? PELLICUL? S?CABLE [Suspect]
     Active Substance: ATENOLOL
     Indication: HYPERTENSION
     Dosage: 1DOSAGE FORM, 1 DAY
     Route: 048
  2. FUROSEMIDE. [Suspect]
     Active Substance: FUROSEMIDE
     Indication: HYPERTENSION
     Route: 048
  3. IRBESARTAN. [Suspect]
     Active Substance: IRBESARTAN
     Indication: HYPERTENSION
     Dosage: 150 MG, 1 DAY
     Route: 048
     Dates: end: 20190118
  4. AMIODARONE ARROW 200 MG, COMPRIM? S?CABLE [Concomitant]
     Indication: ATRIAL FIBRILLATION
     Dosage: 5 DAYS OUT OF 7, 1 DOSAGE FORM, 1 DAY
     Route: 048
     Dates: start: 20190115, end: 20190219
  5. OXAZEPAM. [Suspect]
     Active Substance: OXAZEPAM
     Indication: PRODUCT USED FOR UNKNOWN INDICATION
     Dosage: 25 MG, 1 DAY
     Route: 048
  6. TRINITRINE [Suspect]
     Active Substance: NITROGLYCERIN
     Indication: MYOCARDIAL ISCHAEMIA
     Dosage: 10 MG PER 24 HOURS
     Route: 062
  7. ELIQUIS [Concomitant]
     Active Substance: APIXABAN
     Dosage: 2 DOSAGE FORM, 1 DAY
     Route: 048

REACTIONS (2)
  - Fall [Recovered/Resolved]
  - Hypotension [Recovered/Resolved]

NARRATIVE: CASE EVENT DATE: 20190116
